FAERS Safety Report 7887716-X (Version None)
Quarter: 2011Q4

REPORT INFORMATION
  Report Type: 
  Country: None (occurrence: None)
  Receive Date: 20111103
  Receipt Date: 20111025
  Transmission Date: 20120403
  Serious: Yes (Other)
  Sender: FDA-Public Use
  Company Number: NL-AMGEN-NLDSP2011007160

PATIENT
  Age: 67 Year
  Sex: Male

DRUGS (3)
  1. PHENPROCOUMON [Suspect]
     Indication: AORTIC VALVE REPLACEMENT
     Dosage: UNK
  2. PHENPROCOUMON [Suspect]
     Indication: TRANSIENT ISCHAEMIC ATTACK
  3. ENBREL [Suspect]
     Indication: PSORIASIS
     Dosage: UNK
     Dates: start: 20090901

REACTIONS (1)
  - EPISTAXIS [None]
